FAERS Safety Report 4897541-X (Version None)
Quarter: 2006Q1

REPORT INFORMATION
  Report Type: 
  Country: None (occurrence: None)
  Receive Date: 20060130
  Receipt Date: 20060130
  Transmission Date: 20060701
  Serious: Yes (Life-Threatening, Hospitalization)
  Sender: FDA-Public Use
  Company Number: None

PATIENT
  Age: 77 Year
  Sex: Male
  Weight: 127.3 kg

DRUGS (3)
  1. DEXMEDETOMIDINE [Suspect]
     Indication: AGITATION
     Dosage: 0.1  0.4 MCG/KG/HR
  2. DEXMEDETOMIDINE [Suspect]
     Indication: INTUBATION
     Dosage: 0.1  0.4 MCG/KG/HR
  3. DEXMEDETOMIDINE [Suspect]
     Indication: SEDATION
     Dosage: 0.1  0.4 MCG/KG/HR

REACTIONS (1)
  - BLOOD PRESSURE DIASTOLIC DECREASED [None]
